FAERS Safety Report 18820298 (Version 1)
Quarter: 2021Q1

REPORT INFORMATION
  Report Type: Spontaneous
  Country: FI (occurrence: FI)
  Receive Date: 20210202
  Receipt Date: 20210202
  Transmission Date: 20210419
  Serious: Yes (Other)
  Sender: FDA-Public Use
  Company Number: FI-ASTELLAS-2021US003382

PATIENT
  Age: 73 Year
  Sex: Female

DRUGS (5)
  1. VESICARE [Suspect]
     Active Substance: SOLIFENACIN SUCCINATE
     Indication: HYPERTONIC BLADDER
     Dosage: UNK UNK, UNKNOWN FREQ.
     Route: 065
  2. VESICARE [Suspect]
     Active Substance: SOLIFENACIN SUCCINATE
     Indication: POLLAKIURIA
  3. PANACOD [Interacting]
     Active Substance: ACETAMINOPHEN\CODEINE PHOSPHATE
     Indication: NEURALGIA
     Dosage: UNK UNK, UNKNOWN FREQ.
     Route: 065
  4. BETMIGA [Suspect]
     Active Substance: MIRABEGRON
     Indication: HYPERTONIC BLADDER
     Dosage: UNK UNK, UNKNOWN FREQ.
     Route: 065
  5. BETMIGA [Interacting]
     Active Substance: MIRABEGRON
     Indication: POLLAKIURIA

REACTIONS (5)
  - Adverse event [Unknown]
  - Urinary tract infection [Unknown]
  - Drug interaction [Unknown]
  - Drug ineffective [Unknown]
  - Contracted bladder [Unknown]
